FAERS Safety Report 5091141-7 (Version None)
Quarter: 2006Q3

REPORT INFORMATION
  Report Type: 
  Country: None (occurrence: None)
  Receive Date: 20060727
  Receipt Date: 20060404
  Transmission Date: 20061208
  Serious: Yes (Other)
  Sender: FDA-Public Use
  Company Number: 2006047460

PATIENT
  Sex: Male

DRUGS (2)
  1. LYRICA [Suspect]
     Indication: NEURALGIA
     Dosage: 300 MG (150 MG,2 IN 1 D)
     Dates: start: 20060301
  2. CAPSAICIN (CAPSAICIN) [Suspect]
     Indication: ILL-DEFINED DISORDER

REACTIONS (2)
  - BURNING SENSATION [None]
  - DRUG EFFECT DECREASED [None]
